FAERS Safety Report 7692315-9 (Version None)
Quarter: 2011Q3

REPORT INFORMATION
  Report Type: 
  Country: None (occurrence: None)
  Receive Date: 20110818
  Receipt Date: 20110808
  Transmission Date: 20111222
  Serious: Yes (Hospitalization)
  Sender: FDA-Public Use
  Company Number: PHHY2011US60945

PATIENT
  Sex: Female

DRUGS (16)
  1. GILENYA [Suspect]
     Dosage: 0.5 MG, QD
     Route: 048
     Dates: start: 20110711, end: 20110807
  2. DIFLUCAN [Concomitant]
     Dosage: 200 MG, QD
     Route: 048
  3. LAMOTRIGINE [Concomitant]
     Dosage: 125 MG, 75 MG IN MORNING, 50 MG IN PM
     Route: 048
  4. COLACE [Concomitant]
     Dosage: 100 MG, BID
  5. MULTI-VITAMINS [Concomitant]
     Dosage: 1 DF, QD
     Route: 048
  6. ACYCLOVIR [Concomitant]
     Dosage: 400 MG, TID
     Route: 048
  7. TOPAMAX [Concomitant]
     Dosage: 100 MG, BID
     Route: 048
  8. GILENYA [Suspect]
     Indication: PROGRESSIVE MULTIPLE SCLEROSIS
     Dosage: 0.5 MG, QD
     Route: 048
     Dates: start: 20110615
  9. MIRALAX [Concomitant]
  10. HYDROXYZINE HYDROCHLORIDE [Concomitant]
     Dosage: 25 MG, PRN
     Route: 048
  11. EFFEXOR [Concomitant]
     Dosage: 75 MG, TID
     Route: 048
  12. DEPAKOTE [Concomitant]
     Dosage: 1250 MG,750 MG IN AM AND 500 MG IN PM
  13. CALCIUM WITH VITAMIN D [Concomitant]
     Dosage: 1 DF, BID
     Route: 048
  14. FISH OIL [Concomitant]
     Dosage: 300 MG, QD
     Route: 048
  15. ARICEPT [Concomitant]
     Dosage: 5 MG, QD
     Route: 048
  16. AMBIEN [Concomitant]
     Dosage: 12.5 MG,AT BEDTIME
     Route: 048

REACTIONS (10)
  - GAIT DISTURBANCE [None]
  - SYNCOPE [None]
  - WHITE BLOOD CELL COUNT DECREASED [None]
  - DIZZINESS [None]
  - ASTHENIA [None]
  - SUBDURAL EFFUSION [None]
  - CONFUSIONAL STATE [None]
  - INCOHERENT [None]
  - DISORIENTATION [None]
  - HYPOTENSION [None]
